FAERS Safety Report 20748080 (Version 3)
Quarter: 2022Q2

REPORT INFORMATION
  Report Type: Spontaneous
  Country: US (occurrence: US)
  Receive Date: 20220426
  Receipt Date: 20220602
  Transmission Date: 20220720
  Serious: Yes (Other)
  Sender: FDA-Public Use
  Company Number: US-AMGEN-USASP2022066782

PATIENT
  Age: 68 Year
  Sex: Female

DRUGS (2)
  1. PROLIA [Suspect]
     Active Substance: DENOSUMAB
     Indication: Osteoporosis postmenopausal
     Dosage: UNK, Q6MO
     Route: 065
  2. CALCITONIN SALMON [Concomitant]
     Active Substance: CALCITONIN SALMON

REACTIONS (16)
  - Lumbar vertebral fracture [Unknown]
  - Spinal fracture [Recovered/Resolved]
  - Basal cell carcinoma [Unknown]
  - Compression fracture [Unknown]
  - Back pain [Not Recovered/Not Resolved]
  - Visual impairment [Unknown]
  - Bone density abnormal [Unknown]
  - Hypophagia [Unknown]
  - Abdominal discomfort [Unknown]
  - Nocturia [Unknown]
  - Dyspnoea [Unknown]
  - Weight decreased [Unknown]
  - Memory impairment [Unknown]
  - Pain [Not Recovered/Not Resolved]
  - Chronic obstructive pulmonary disease [Unknown]
  - Sleep disorder due to a general medical condition [Unknown]
